FAERS Safety Report 25529030 (Version 1)
Quarter: 2025Q3

REPORT INFORMATION
  Report Type: Spontaneous
  Country: US (occurrence: None)
  Receive Date: 20250707
  Receipt Date: 20250707
  Transmission Date: 20251020
  Serious: Yes (Other)
  Sender: FDA-CTU
  Company Number: None

PATIENT
  Age: 42 Year
  Sex: Female

DRUGS (1)
  1. HYQVIA [Suspect]
     Active Substance: HUMAN IMMUNOGLOBULIN G\HYALURONIDASE (HUMAN RECOMBINANT)
     Dates: start: 20250115, end: 20250707

REACTIONS (5)
  - Drug ineffective [None]
  - Drug intolerance [None]
  - Erythema [None]
  - Swelling [None]
  - Infusion related reaction [None]

NARRATIVE: CASE EVENT DATE: 20250707
